FAERS Safety Report 7286674-9 (Version None)
Quarter: 2011Q1

REPORT INFORMATION
  Report Type: 
  Country: None (occurrence: None)
  Receive Date: 20110210
  Receipt Date: 20110126
  Transmission Date: 20110831
  Serious: Yes (Hospitalization)
  Sender: FDA-Public Use
  Company Number: DE-GENENTECH-313283

PATIENT

DRUGS (3)
  1. LUCENTIS [Suspect]
     Dosage: UNK
     Route: 031
     Dates: start: 20080201
  2. LUCENTIS [Suspect]
     Dosage: UNK
     Route: 031
     Dates: start: 20101125
  3. LUCENTIS [Suspect]
     Indication: MACULAR DEGENERATION
     Dosage: UNK
     Route: 031
     Dates: start: 20071101

REACTIONS (3)
  - CIRCULATORY COLLAPSE [None]
  - ASTHENIA [None]
  - PLASMACYTOMA [None]
